FAERS Safety Report 5651864-5 (Version None)
Quarter: 2008Q1

REPORT INFORMATION
  Report Type: 
  Country: None (occurrence: None)
  Receive Date: 20080305
  Receipt Date: 20080222
  Transmission Date: 20080703
  Serious: Yes (Other)
  Sender: FDA-Public Use
  Company Number: US-PFIZER INC-2006097546

PATIENT
  Sex: Female
  Weight: 75.8 kg

DRUGS (15)
  1. LYRICA [Suspect]
     Indication: NEUROPATHY PERIPHERAL
     Route: 065
  2. TRICOR [Suspect]
     Indication: FAMILIAL HYPERTRIGLYCERIDAEMIA
     Route: 065
  3. ALL OTHER THERAPEUTIC PRODUCTS [Suspect]
     Indication: PAIN
     Route: 065
  4. PREMARIN [Concomitant]
     Route: 065
  5. MAXZIDE [Concomitant]
     Route: 065
  6. PROTONIX [Concomitant]
     Route: 065
  7. ACYCLOVIR [Concomitant]
     Route: 065
  8. LEVOTHYROXINE SODIUM [Concomitant]
     Route: 065
  9. RANITIDINE [Concomitant]
     Route: 065
  10. LIPITOR [Concomitant]
     Route: 065
  11. ATENOLOL [Concomitant]
     Route: 065
  12. FIORINAL [Concomitant]
     Indication: NECK PAIN
     Route: 065
  13. TRAMADOL HCL [Concomitant]
     Route: 065
  14. OXYCODONE HCL [Concomitant]
     Route: 065
  15. NORTRIPTYLINE HCL [Concomitant]
     Indication: NEUROPATHY PERIPHERAL
     Route: 065

REACTIONS (16)
  - ASTHENIA [None]
  - DRUG INEFFECTIVE [None]
  - DYSPHAGIA [None]
  - FATIGUE [None]
  - GAIT DISTURBANCE [None]
  - HEADACHE [None]
  - INTESTINAL OBSTRUCTION [None]
  - MOUTH INJURY [None]
  - NAUSEA [None]
  - NEUROPATHY PERIPHERAL [None]
  - OEDEMA MOUTH [None]
  - PAIN [None]
  - SLEEP DISORDER [None]
  - UNEVALUABLE EVENT [None]
  - WEIGHT DECREASED [None]
  - WEIGHT INCREASED [None]
